FAERS Safety Report 8431489-9 (Version None)
Quarter: 2012Q2

REPORT INFORMATION
  Report Type: 
  Country: None (occurrence: None)
  Receive Date: 20120607
  Receipt Date: 20120607
  Transmission Date: 20120825
  Serious: Yes (Life-Threatening, Other)
  Sender: FDA-Public Use
  Company Number: None

PATIENT
  Sex: Female
  Weight: 56.6996 kg

DRUGS (2)
  1. FERROUS SULFATE TAB [Suspect]
     Indication: ANAEMIA
     Dosage: 2 TIMES A DAY
     Dates: start: 20120301
  2. FERROUS SULFATE TAB [Suspect]
     Indication: ANAEMIA
     Dosage: 2 TIMES A DAY
     Dates: start: 20100501

REACTIONS (3)
  - MENSTRUAL DISORDER [None]
  - THROMBOSIS [None]
  - MENORRHAGIA [None]
